FAERS Safety Report 9719761 (Version 2)
Quarter: 2013Q4

REPORT INFORMATION
  Report Type: Spontaneous
  Country: FR (occurrence: FR)
  Receive Date: 20131128
  Receipt Date: 20131128
  Transmission Date: 20140711
  Serious: Yes (Other)
  Sender: FDA-Public Use
  Company Number: FR-SUN PHARMACEUTICAL INDUSTRIES LTD-13SUNPA02P

PATIENT
  Age: 28 Year
  Sex: Female

DRUGS (9)
  1. PANTOPRAZOLE SUN 40 MG POUDRE POUR SOLUTION INJECTABLE [Suspect]
     Indication: PRODUCT USED FOR UNKNOWN INDICATION
     Route: 042
     Dates: start: 20130405
  2. SIROCTID [Suspect]
     Dosage: 500 MCG, SINGLE
     Route: 058
     Dates: start: 20130408, end: 20130408
  3. METHYLPREDNISOLONE [Suspect]
     Route: 042
     Dates: start: 20130406, end: 20130408
  4. HUMAN NORMAL IMMUNOGLOBULIN [Suspect]
     Route: 042
     Dates: start: 20130406, end: 20130408
  5. LABETALOL [Suspect]
     Route: 048
     Dates: start: 20130405, end: 20130408
  6. HYDROXYCHLOROQUINE [Suspect]
     Route: 048
     Dates: end: 20130408
  7. ACETYLSALICYLIC ACID [Suspect]
     Route: 048
     Dates: end: 20130408
  8. AMLODIPINE [Suspect]
     Route: 048
     Dates: end: 20130408
  9. SEVELAMER [Suspect]
     Route: 048
     Dates: end: 20130408

REACTIONS (2)
  - Pancreatitis acute [Unknown]
  - Exposure during pregnancy [Recovered/Resolved]
